FAERS Safety Report 20524882 (Version 1)
Quarter: 2022Q1

REPORT INFORMATION
  Report Type: Report from Study
  Country: FR (occurrence: FR)
  Receive Date: 20220228
  Receipt Date: 20220228
  Transmission Date: 20220423
  Serious: Yes (Other)
  Sender: FDA-Public Use
  Company Number: FR-LEO Pharma-341127

PATIENT
  Age: 64 Year
  Sex: Male

DRUGS (3)
  1. TRALOKINUMAB [Suspect]
     Active Substance: TRALOKINUMAB
     Indication: Dermatitis atopic
     Route: 058
  2. DEVICE [Suspect]
     Active Substance: DEVICE
     Indication: Dermatitis atopic
  3. FLUTICASONE [Concomitant]
     Active Substance: FLUTICASONE
     Indication: Product used for unknown indication
     Dosage: DOSAGE : TWICE A DAY, IF NEEDED

REACTIONS (1)
  - Dermatitis exfoliative generalised [Unknown]
